FAERS Safety Report 4675480-7 (Version None)
Quarter: 2005Q2

REPORT INFORMATION
  Report Type: 
  Country: None (occurrence: None)
  Receive Date: 20050527
  Receipt Date: 20050318
  Transmission Date: 20051028
  Serious: Yes (Other)
  Sender: FDA-Public Use
  Company Number: US-BRISTOL-MYERS SQUIBB COMPANY-12902516

PATIENT
  Age: 18 Year
  Sex: Male

DRUGS (3)
  1. ABILIFY [Suspect]
     Indication: AUTISM SPECTRUM DISORDER
  2. LUVOX [Concomitant]
  3. SEROQUEL [Concomitant]

REACTIONS (1)
  - PRIAPISM [None]
